FAERS Safety Report 19289003 (Version 1)
Quarter: 2021Q2

REPORT INFORMATION
  Report Type: Spontaneous
  Country: SE (occurrence: SE)
  Receive Date: 20210521
  Receipt Date: 20210521
  Transmission Date: 20210717
  Serious: Yes (Disabling)
  Sender: FDA-Public Use
  Company Number: NVSC2021SE106001

PATIENT
  Age: 77 Year
  Sex: Female
  Weight: 69 kg

DRUGS (1)
  1. GABAPENTIN 1A FARMA [Suspect]
     Active Substance: GABAPENTIN
     Indication: NECK PAIN
     Dosage: 100 MG, QD (KAPSEL, HARD)
     Route: 048
     Dates: start: 20210310

REACTIONS (6)
  - Pyrexia [Recovered/Resolved]
  - Pain in extremity [Unknown]
  - Fatigue [Not Recovered/Not Resolved]
  - Nausea [Unknown]
  - Headache [Recovering/Resolving]
  - Dizziness [Not Recovered/Not Resolved]

NARRATIVE: CASE EVENT DATE: 20210408
